FAERS Safety Report 12138277 (Version 2)
Quarter: 2016Q2

REPORT INFORMATION
  Report Type: Spontaneous
  Country: JP (occurrence: JP)
  Receive Date: 20160302
  Receipt Date: 20160401
  Transmission Date: 20160815
  Serious: No
  Sender: FDA-Public Use
  Company Number: JP-BAUSCH-BL-2016-004954

PATIENT
  Sex: Female

DRUGS (2)
  1. VERTEPORFIN [Suspect]
     Active Substance: VERTEPORFIN
     Indication: AGE-RELATED MACULAR DEGENERATION
     Dosage: INTRAVITREAL ROUTE
     Route: 047
     Dates: start: 201508
  2. VERTEPORFIN [Suspect]
     Active Substance: VERTEPORFIN
     Indication: CHORIORETINOPATHY
     Dosage: INTRAVITREAL INJECTION
     Route: 047
     Dates: start: 201509, end: 201509

REACTIONS (3)
  - Product use issue [Unknown]
  - Retinal haemorrhage [Recovered/Resolved]
  - Polypoidal choroidal vasculopathy [Unknown]
